FAERS Safety Report 13507704 (Version 2)
Quarter: 2017Q2

REPORT INFORMATION
  Report Type: Spontaneous
  Country: US (occurrence: US)
  Receive Date: 20170503
  Receipt Date: 20170612
  Transmission Date: 20170830
  Serious: No
  Sender: FDA-Public Use
  Company Number: US-REGULIS-2020154

PATIENT
  Age: 80 Year
  Sex: Female

DRUGS (1)
  1. PROVAYBLUE [Suspect]
     Active Substance: METHYLENE BLUE
     Indication: IMAGING PROCEDURE
     Dates: start: 20170317, end: 20170317

REACTIONS (2)
  - Skin discolouration [Unknown]
  - Pruritus [Unknown]
